FAERS Safety Report 24581081 (Version 3)
Quarter: 2025Q1

REPORT INFORMATION
  Report Type: Spontaneous
  Country: US (occurrence: US)
  Receive Date: 20241105
  Receipt Date: 20250129
  Transmission Date: 20250408
  Serious: Yes (Other)
  Sender: PFIZER
  Company Number: US-PFIZER INC-202400293659

PATIENT
  Age: 58 Year
  Sex: Female

DRUGS (1)
  1. DEPO-PROVERA [Suspect]
     Active Substance: MEDROXYPROGESTERONE ACETATE
     Indication: Contraception
     Dosage: UNK, EVERY 3 MONTHS

REACTIONS (4)
  - Injection site injury [Unknown]
  - Brain neoplasm [Not Recovered/Not Resolved]
  - Infection [Unknown]
  - Pain [Not Recovered/Not Resolved]
